FAERS Safety Report 9210683 (Version 1)
Quarter: 2013Q2

REPORT INFORMATION
  Report Type: Spontaneous
  Country: US (occurrence: US)
  Receive Date: 20130404
  Receipt Date: 20130404
  Transmission Date: 20140414
  Serious: No
  Sender: FDA-Public Use
  Company Number: US-PFIZER INC-2013107543

PATIENT
  Age: 76 Year
  Sex: Female
  Weight: 67.12 kg

DRUGS (2)
  1. LYRICA [Suspect]
     Indication: SPINAL PAIN
     Dosage: 50 MG, 2X/DAY
     Route: 048
     Dates: start: 201303
  2. LOPRESSOR [Concomitant]
     Dosage: 50MG IN THE MORNING AND 100MG IN THE EVENING

REACTIONS (3)
  - Somnolence [Unknown]
  - Dry mouth [Unknown]
  - Drug effect decreased [Unknown]
